FAERS Safety Report 7233350-4 (Version None)
Quarter: 2011Q1

REPORT INFORMATION
  Report Type: 
  Country: None (occurrence: None)
  Receive Date: 20110119
  Receipt Date: 20110113
  Transmission Date: 20110831
  Serious: Yes (Death, Other)
  Sender: FDA-Public Use
  Company Number: PHHY2009GB18594

PATIENT
  Sex: Female

DRUGS (7)
  1. CLOZARIL [Interacting]
     Indication: SCHIZOPHRENIA
     Dosage: 650 MG
     Route: 048
     Dates: start: 20050819, end: 20090501
  2. CLOZARIL [Interacting]
     Dosage: 650 MG, UNK
     Dates: start: 20090501
  3. VALPROATE SODIUM [Concomitant]
     Indication: CONVULSION
     Dosage: 600 MG
     Route: 048
     Dates: start: 20080101
  4. EFFEXOR XR [Interacting]
     Indication: DEPRESSION
     Dosage: 150 MG, QD
     Route: 048
     Dates: start: 20040101
  5. EFFEXOR XR [Interacting]
     Dosage: 225 MG, QD
  6. VENLAFAXINE [Suspect]
     Dosage: 225 MG, QD
     Route: 048
     Dates: start: 20050101
  7. ATENOLOL [Concomitant]
     Dosage: 50 MG, UNK
     Route: 048
     Dates: start: 20080101

REACTIONS (9)
  - SYNCOPE [None]
  - EPILEPSY [None]
  - DRUG INTERACTION [None]
  - ANTICONVULSANT DRUG LEVEL INCREASED [None]
  - ANTIDEPRESSANT DRUG LEVEL INCREASED [None]
  - TOXICITY TO VARIOUS AGENTS [None]
  - CYANOSIS [None]
  - FALL [None]
  - VOMITING [None]
